FAERS Safety Report 16699677 (Version 1)
Quarter: 2019Q3

REPORT INFORMATION
  Report Type: Spontaneous
  Country: JP (occurrence: JP)
  Receive Date: 20190813
  Receipt Date: 20190813
  Transmission Date: 20191004
  Serious: Yes (Hospitalization)
  Sender: FDA-Public Use
  Company Number: JP-ALLERGAN-1932611US

PATIENT
  Sex: Female

DRUGS (4)
  1. URSODEOXYCHOLIC ACID UNK [Suspect]
     Active Substance: URSODIOL
     Indication: CHOLESTASIS
     Dosage: 16 MG/KG, QD
     Route: 065
  2. VITAMINS NOS [Concomitant]
     Active Substance: VITAMINS
  3. MEDIUM CHAIN TRIGLYCERIDES [Concomitant]
  4. FRESH FROZEN PLASMA [Concomitant]
     Active Substance: HUMAN PLASMA

REACTIONS (3)
  - Hepatic failure [Recovering/Resolving]
  - Off label use [Unknown]
  - Liver function test decreased [Recovering/Resolving]
